FAERS Safety Report 17607908 (Version 2)
Quarter: 2020Q2

REPORT INFORMATION
  Report Type: Spontaneous
  Country: US (occurrence: US)
  Receive Date: 20200331
  Receipt Date: 20200513
  Transmission Date: 20200713
  Serious: No
  Sender: FDA-Public Use
  Company Number: US-BAUSCH-BL-2020-008711

PATIENT
  Age: 34 Year
  Sex: Male
  Weight: 79.45 kg

DRUGS (2)
  1. LUMIFY [Suspect]
     Active Substance: BRIMONIDINE TARTRATE
     Indication: OCULAR HYPERAEMIA
     Dosage: ONE DROP IN EACH EYE TEN TO TWELVE TIMES PER WEEK; START DATE: ABOUT ONE YEAR AGO PRIOR THIS REPORT
     Route: 047
  2. LUMIFY [Suspect]
     Active Substance: BRIMONIDINE TARTRATE
     Dosage: RECEIVED ONE BOTTLE ON 19/JAN/2020 OR 20/JAN/2020, ONE DROP IN EACH EYE TEN TO TWELVE TIMES PER WEEK
     Route: 047
     Dates: start: 202001, end: 20200317

REACTIONS (3)
  - Ocular discomfort [Recovered/Resolved]
  - Eye irritation [Recovered/Resolved]
  - Product quality issue [Unknown]

NARRATIVE: CASE EVENT DATE: 202001
